FAERS Safety Report 9549651 (Version 2)
Quarter: 2013Q3

REPORT INFORMATION
  Report Type: Spontaneous
  Country: FR (occurrence: FR)
  Receive Date: 20130924
  Receipt Date: 20130924
  Transmission Date: 20140515
  Serious: Yes (Hospitalization, Other)
  Sender: FDA-Public Use
  Company Number: FR-ELI_LILLY_AND_COMPANY-FR201209005720

PATIENT
  Age: 23 Year
  Sex: Female

DRUGS (9)
  1. ADCIRCA [Suspect]
     Indication: PULMONARY ARTERIAL HYPERTENSION
     Dosage: 20 MG, BID
     Route: 048
     Dates: start: 20120227
  2. ADCIRCA [Suspect]
     Dosage: 20 MG, QD
     Route: 048
  3. TRACLEER [Concomitant]
     Indication: PULMONARY ARTERIAL HYPERTENSION
     Dosage: 125 MG, BID
  4. SECTRAL [Concomitant]
     Dosage: 100 MG, BID
     Dates: start: 201202
  5. PREVISCAN [Concomitant]
     Dosage: UNK
     Dates: start: 200707, end: 201209
  6. FRAXODI [Concomitant]
     Dosage: UNK
     Dates: start: 201209
  7. SANMIGRAN [Concomitant]
     Dosage: UNK
  8. LEVOTHYROX [Concomitant]
     Dosage: UNK
  9. MINIDRIL [Concomitant]
     Indication: CONTRACEPTION
     Dosage: UNK

REACTIONS (6)
  - Cardiac disorder [Unknown]
  - Intrapartum haemorrhage [Recovered/Resolved]
  - Premature separation of placenta [Unknown]
  - Exposure during pregnancy [Unknown]
  - Haematoma [Unknown]
  - Vomiting [Unknown]
